FAERS Safety Report 5391814-2 (Version None)
Quarter: 2007Q3

REPORT INFORMATION
  Report Type: 
  Country: None (occurrence: None)
  Receive Date: 20070718
  Receipt Date: 20070709
  Transmission Date: 20080115
  Serious: Yes (Life-Threatening, Hospitalization, Disabling, Other)
  Sender: FDA-Public Use
  Company Number: 2007US000300

PATIENT
  Age: 52 Year
  Sex: Female

DRUGS (36)
  1. PROGRAF [Suspect]
     Indication: PROPHYLAXIS AGAINST TRANSPLANT REJECTION
     Dosage: 0.5 MG, ORAL
     Route: 048
     Dates: start: 20060904
  2. MYCOPHENOLATE MOFETIL [Suspect]
     Indication: PROPHYLAXIS AGAINST TRANSPLANT REJECTION
     Dosage: 1000 MG, BID, ORAL
     Route: 048
     Dates: start: 20060904
  3. PREDNISONE TAB [Suspect]
     Indication: PROPHYLAXIS AGAINST TRANSPLANT REJECTION
     Dosage: 2.5 MG UID/QD, ORAL
     Route: 048
     Dates: start: 20060904
  4. CYCLOSPORINE [Suspect]
     Indication: PROPHYLAXIS AGAINST TRANSPLANT REJECTION
     Dosage: 100 MG, ORAL
     Route: 048
     Dates: start: 20070212, end: 20070323
  5. CYCLOSPORINE [Suspect]
     Indication: PROPHYLAXIS AGAINST TRANSPLANT REJECTION
     Dosage: 100 MG, ORAL
     Route: 048
     Dates: start: 20070212
  6. SEPTRA [Concomitant]
  7. PREVACID [Concomitant]
  8. MVI (VITAMINS NOS0 [Concomitant]
  9. LASIX [Concomitant]
  10. LEVAQUIN [Concomitant]
  11. COUMADIN [Concomitant]
  12. AMIODARONE HCL [Concomitant]
  13. COREG [Concomitant]
  14. HEPARIN [Concomitant]
  15. DIURIL (CHOLOROTHIAZIDE) [Concomitant]
  16. HYDRALAZINE HCL [Concomitant]
  17. IMDUR [Concomitant]
  18. DOBUTAMINE (DOBUTAMINE) [Concomitant]
  19. TORSEMIDE [Concomitant]
  20. METOPROLOL TARTRATE [Concomitant]
  21. LEVENOX (ENOXAPARIN SODIUM) [Concomitant]
  22. LIDOCAINE [Concomitant]
  23. PROTONIX [Concomitant]
  24. FLUCONAZOLE [Concomitant]
  25. NORVASC 9AMLODIPINE BESILATE) [Concomitant]
  26. VALCYTE [Concomitant]
  27. VANCOMYCIN (VANCOMYCIN HYDROCHLORIDE0 [Concomitant]
  28. INSULIN (INSULIN HUMAN) [Concomitant]
  29. FENTANYL [Concomitant]
  30. COLACE (DOCUSATE SODIUM) [Concomitant]
  31. RESTORIL [Concomitant]
  32. TYLENOL (CAPLET) [Concomitant]
  33. ZOFRAN [Concomitant]
  34. ALBUTEROL [Concomitant]
  35. KAYEXALATE [Concomitant]
  36. SEPTRA DS [Concomitant]

REACTIONS (15)
  - ATRIAL FIBRILLATION [None]
  - CARDIAC FAILURE CONGESTIVE [None]
  - CARDIOMEGALY [None]
  - CARDIOMYOPATHY [None]
  - COMPLICATIONS OF TRANSPLANTED KIDNEY [None]
  - CONDITION AGGRAVATED [None]
  - CYTOMEGALOVIRUS ANTIBODY POSITIVE [None]
  - HEART TRANSPLANT [None]
  - INFLUENZA [None]
  - PNEUMONIA [None]
  - RENAL FAILURE [None]
  - RENAL TRANSPLANT [None]
  - RENAL TUBULAR NECROSIS [None]
  - SINUS BRADYCARDIA [None]
  - VENTRICULAR TACHYCARDIA [None]
